FAERS Safety Report 19926608 (Version 1)
Quarter: 2021Q4

REPORT INFORMATION
  Report Type: Spontaneous
  Country: US (occurrence: US)
  Receive Date: 20211007
  Receipt Date: 20211007
  Transmission Date: 20220303
  Serious: No
  Sender: FDA-Public Use
  Company Number: US-INDIVIOR US-INDV-125886-2020

PATIENT

DRUGS (2)
  1. SUBOXONE [Suspect]
     Active Substance: BUPRENORPHINE HYDROCHLORIDE\NALOXONE HYDROCHLORIDE
     Indication: Product used for unknown indication
     Dosage: UNK
     Route: 065
     Dates: start: 2003
  2. SUBLOCADE [Suspect]
     Active Substance: BUPRENORPHINE
     Indication: Product used for unknown indication
     Dosage: 300 MILLIGRAM, QMO
     Route: 065

REACTIONS (7)
  - Tooth loss [Recovered/Resolved]
  - Sexual dysfunction [Recovered/Resolved]
  - Drug dependence [Recovered/Resolved]
  - Intentional underdose [Recovered/Resolved]
  - Drug effect less than expected [Unknown]
  - Intentional product use issue [Recovered/Resolved]
  - Oral administration complication [Recovered/Resolved]

NARRATIVE: CASE EVENT DATE: 20030101
